FAERS Safety Report 7419780-6 (Version None)
Quarter: 2011Q2

REPORT INFORMATION
  Report Type: 
  Country: None (occurrence: None)
  Receive Date: 20110413
  Receipt Date: 20110413
  Transmission Date: 20111010
  Serious: No
  Sender: FDA-Public Use
  Company Number: None

PATIENT
  Age: 8 Year
  Sex: Male
  Weight: 31 kg

DRUGS (2)
  1. PRIVIGEN [Suspect]
     Indication: PRIMARY IMMUNODEFICIENCY SYNDROME
     Dosage: MONTHLY
     Dates: end: 20100306
  2. HIZENTRA [Suspect]
     Indication: PRIMARY IMMUNODEFICIENCY SYNDROME
     Dosage: 4 GRAMS ONCE WEEKLY SQ
     Route: 058
     Dates: start: 20110309

REACTIONS (2)
  - PSYCHOMOTOR HYPERACTIVITY [None]
  - FLUSHING [None]
